FAERS Safety Report 6825873-4 (Version None)
Quarter: 2010Q3

REPORT INFORMATION
  Report Type: 
  Country: None (occurrence: None)
  Receive Date: 20100707
  Receipt Date: 20100707
  Transmission Date: 20110219
  Serious: Yes (Life-Threatening)
  Sender: FDA-Public Use
  Company Number: None

PATIENT
  Age: 70 Year
  Sex: Female
  Weight: 81.1939 kg

DRUGS (1)
  1. FERROUS GLUCONATE SGR TABS. [Suspect]
     Indication: URINARY TRACT INFECTION
     Dosage: ONE TAB. A DAY
     Dates: start: 20100511, end: 20100521

REACTIONS (2)
  - HYPERSENSITIVITY [None]
  - RED BLOOD CELL COUNT DECREASED [None]
